FAERS Safety Report 10659249 (Version 2)
Quarter: 2014Q4

REPORT INFORMATION
  Report Type: Spontaneous
  Country: CO (occurrence: CO)
  Receive Date: 20141217
  Receipt Date: 20141223
  Transmission Date: 20150529
  Serious: Yes (Hospitalization, Other)
  Sender: FDA-Public Use
  Company Number: CO-ABBVIE-14P-036-1322117-00

PATIENT
  Sex: Female

DRUGS (1)
  1. TARKA [Suspect]
     Active Substance: TRANDOLAPRIL\VERAPAMIL HYDROCHLORIDE
     Indication: HYPERTENSION
     Dosage: FORM STRENGTH: 180/2 MG; TOTAL DAILY DOSE: 180/2 MG
     Route: 065
     Dates: start: 2009, end: 201411

REACTIONS (3)
  - Hypertensive emergency [Unknown]
  - Peripheral vascular disorder [Unknown]
  - Vasculitis [Unknown]

NARRATIVE: CASE EVENT DATE: 201312
